FAERS Safety Report 6739809-8 (Version None)
Quarter: 2010Q2

REPORT INFORMATION
  Report Type: 
  Country: None (occurrence: None)
  Receive Date: 20100525
  Receipt Date: 20100511
  Transmission Date: 20101027
  Serious: Yes (Other)
  Sender: FDA-Public Use
  Company Number: PHHY2010CA31433

PATIENT
  Sex: Female
  Weight: 60 kg

DRUGS (2)
  1. ACLASTA/ZOLEDRONATE T29581+A+ [Suspect]
     Indication: OSTEOPOROSIS
     Dosage: UNK
     Route: 042
     Dates: start: 20091022
  2. FOSAMAX [Concomitant]

REACTIONS (3)
  - FALL [None]
  - FOREARM FRACTURE [None]
  - WRIST FRACTURE [None]
